FAERS Safety Report 6232585-7 (Version None)
Quarter: 2009Q2

REPORT INFORMATION
  Report Type: 
  Country: None (occurrence: None)
  Receive Date: 20090617
  Receipt Date: 20090615
  Transmission Date: 20091009
  Serious: No
  Sender: FDA-Public Use
  Company Number: US-BIOGENIDEC-2009BI013706

PATIENT
  Sex: Female

DRUGS (2)
  1. TYSABRI [Suspect]
     Indication: MULTIPLE SCLEROSIS
     Route: 042
     Dates: start: 20050203, end: 20050201
  2. TYSABRI [Suspect]
     Route: 042
     Dates: start: 20061107

REACTIONS (3)
  - FALL [None]
  - PELVIC FRACTURE [None]
  - URINARY TRACT INFECTION [None]
